FAERS Safety Report 7275002-0 (Version None)
Quarter: 2011Q1

REPORT INFORMATION
  Report Type: 
  Country: None (occurrence: None)
  Receive Date: 20110204
  Receipt Date: 20110203
  Transmission Date: 20110831
  Serious: Yes (Hospitalization, Other)
  Sender: FDA-Public Use
  Company Number: CO-PFIZER INC-2010107870

PATIENT
  Age: 62 Year
  Sex: Female

DRUGS (3)
  1. BETALOC [Concomitant]
     Indication: MITRAL VALVE STENOSIS
  2. DETRUSITOL [Suspect]
     Indication: MICTURITION URGENCY
     Dosage: 4 MG, 1X/DAY
     Route: 048
     Dates: start: 20100816, end: 20100819
  3. UNIPRIL [Concomitant]
     Indication: MITRAL VALVE STENOSIS

REACTIONS (3)
  - BLOOD PRESSURE INCREASED [None]
  - MYOCARDIAL INFARCTION [None]
  - BLADDER SPASM [None]
